FAERS Safety Report 10178576 (Version 2)
Quarter: 2014Q2

REPORT INFORMATION
  Report Type: Report from Study
  Country: US (occurrence: US)
  Receive Date: 20140519
  Receipt Date: 20140602
  Transmission Date: 20141212
  Serious: Yes (Other)
  Sender: FDA-Public Use
  Company Number: US-ROCHE-1400854

PATIENT
  Age: 43 Year
  Sex: Male

DRUGS (7)
  1. XOLAIR [Suspect]
     Indication: IDIOPATHIC URTICARIA
     Route: 058
     Dates: start: 20130409, end: 20140512
  2. XOLAIR [Suspect]
     Indication: ANGIOEDEMA
  3. BENADRYL (UNITED STATES) [Concomitant]
     Indication: IDIOPATHIC URTICARIA
     Route: 048
     Dates: start: 20131003
  4. ALLEGRA [Concomitant]
     Indication: IDIOPATHIC URTICARIA
     Route: 048
     Dates: start: 20131003
  5. METHOTREXATE [Concomitant]
     Indication: IDIOPATHIC URTICARIA
     Route: 048
     Dates: start: 20131003
  6. ZANTAC [Concomitant]
     Indication: GASTROOESOPHAGEAL REFLUX DISEASE
     Route: 048
     Dates: start: 20131003
  7. PREDNISONE [Concomitant]
     Indication: IDIOPATHIC URTICARIA
     Route: 048
     Dates: start: 20131003

REACTIONS (6)
  - Laryngeal oedema [Recovering/Resolving]
  - Dysphonia [Recovering/Resolving]
  - Dysphagia [Recovering/Resolving]
  - Urticaria [Unknown]
  - Lip swelling [Unknown]
  - Pharyngeal oedema [Unknown]
